FAERS Safety Report 23072436 (Version 2)
Quarter: 2023Q4

REPORT INFORMATION
  Report Type: Spontaneous
  Country: US (occurrence: US)
  Receive Date: 20231017
  Receipt Date: 20231215
  Transmission Date: 20240109
  Serious: Yes (Life-Threatening, Other)
  Sender: FDA-Public Use
  Company Number: US-JNJFOC-20231014910

PATIENT
  Age: 75 Year
  Sex: Female
  Weight: 66.284 kg

DRUGS (2)
  1. DARZALEX [Suspect]
     Active Substance: DARATUMUMAB
     Indication: Plasma cell myeloma
     Dosage: 16MG/KG X 71.5KG - ONCE MONTHLY?1100 MG BAG IV BAG?EXPIRATION DATE: 09/30/2024 AND 06/30/2024
     Route: 041
     Dates: start: 20180729
  2. DARZALEX [Suspect]
     Active Substance: DARATUMUMAB
     Dosage: 16MG/KG X 71.5KG - ONCE MONTHLY?1100 MG BAG IV BAG?EXPIRATION DATE: 09/30/2024 AND 06/30/2024
     Route: 041
     Dates: start: 20180729

REACTIONS (1)
  - Cerebrovascular accident [Unknown]

NARRATIVE: CASE EVENT DATE: 20230719
